FAERS Safety Report 14323524 (Version 1)
Quarter: 2017Q4

REPORT INFORMATION
  Report Type: Spontaneous
  Country: FR (occurrence: FR)
  Receive Date: 20171226
  Receipt Date: 20171226
  Transmission Date: 20180321
  Serious: Yes (Hospitalization, Other)
  Sender: FDA-Public Use
  Company Number: FR-HETERO CORPORATE-HET2017FR00423

PATIENT
  Age: 87 Year
  Sex: Female

DRUGS (2)
  1. LEVOFLOXACIN. [Suspect]
     Active Substance: LEVOFLOXACIN
     Indication: ENTEROCOCCAL INFECTION
     Dosage: UNK, BID
     Route: 065
  2. AMOXICILLIN. [Concomitant]
     Active Substance: AMOXICILLIN
     Indication: ENTEROCOCCAL INFECTION
     Dosage: 1 G, TID
     Route: 051

REACTIONS (1)
  - Cerebellar syndrome [Recovering/Resolving]
